FAERS Safety Report 17665302 (Version 1)
Quarter: 2020Q2

REPORT INFORMATION
  Report Type: Spontaneous
  Country: US (occurrence: US)
  Receive Date: 20200413
  Receipt Date: 20200413
  Transmission Date: 20200713
  Serious: No
  Sender: FDA-Public Use
  Company Number: None

PATIENT
  Age: 73 Year
  Sex: Male
  Weight: 92.53 kg

DRUGS (1)
  1. EMPAGLIFLOZIN (EMPAGLIFLOZIN 25MG TAB) [Suspect]
     Active Substance: EMPAGLIFLOZIN
     Indication: DIABETES MELLITUS
     Dosage: ?          OTHER DOSE:12.5MG;OTHER FREQUENCY:AM;?
     Route: 048
     Dates: start: 20200203, end: 20200316

REACTIONS (1)
  - Diarrhoea [None]

NARRATIVE: CASE EVENT DATE: 20200316
